FAERS Safety Report 24167124 (Version 1)
Quarter: 2024Q3

REPORT INFORMATION
  Report Type: Report from Study
  Country: FR (occurrence: FR)
  Receive Date: 20240802
  Receipt Date: 20240802
  Transmission Date: 20241017
  Serious: Yes (Other)
  Sender: RECORDATI
  Company Number: FR-RECORDATI RARE DISEASE INC.-2024005800

PATIENT

DRUGS (4)
  1. DACTINOMYCIN [Suspect]
     Active Substance: DACTINOMYCIN
     Indication: Ewing^s sarcoma
     Dosage: 0.75 MG/M2 ON DAY 1 (AVERAGE-8 VAI REGIMEN)
  2. VINCRISTINE [Suspect]
     Active Substance: VINCRISTINE
     Indication: Ewing^s sarcoma
     Dosage: 1.5 MG/SQUARE METER ON DAY 1 (AVERAGE-8 VAI CYCLE)
  3. IFOSFAMIDE [Suspect]
     Active Substance: IFOSFAMIDE
     Indication: Ewing^s sarcoma
     Dosage: 3 G/SQUARE METER ON DAY 1-2 (PLUS UROMITEXAN) (AVERAGE-8 VAI CYCLES)
  4. MESNA [Suspect]
     Active Substance: MESNA
     Indication: Ewing^s sarcoma
     Dosage: WITH IFOSFAMIDE (VAI)

REACTIONS (1)
  - Urinary bladder toxicity [Unknown]
